FAERS Safety Report 7557238-4 (Version None)
Quarter: 2011Q2

REPORT INFORMATION
  Report Type: 
  Country: None (occurrence: None)
  Receive Date: 20110620
  Receipt Date: 20110418
  Transmission Date: 20111010
  Serious: No
  Sender: FDA-Public Use
  Company Number: US-MYLANLABS-2011S1008204

PATIENT
  Sex: Male

DRUGS (1)
  1. PERFOROMIST [Suspect]
     Route: 055

REACTIONS (2)
  - DIZZINESS [None]
  - DRUG EFFECT DECREASED [None]
